FAERS Safety Report 12890148 (Version 1)
Quarter: 2016Q4

REPORT INFORMATION
  Report Type: Spontaneous
  Country: US (occurrence: US)
  Receive Date: 20161027
  Receipt Date: 20161027
  Transmission Date: 20170207
  Serious: No
  Sender: FDA-Public Use
  Company Number: US-MYLANLABS-2015M1045594

PATIENT
  Age: 59 Year
  Sex: Male
  Weight: 146.94 kg

DRUGS (1)
  1. RISPERIDONE TABLETS, USP [Suspect]
     Active Substance: RISPERIDONE
     Indication: BIPOLAR DISORDER
     Dosage: UNK
     Route: 048

REACTIONS (1)
  - Constipation [Recovered/Resolved]
